FAERS Safety Report 7037860-4 (Version None)
Quarter: 2010Q4

REPORT INFORMATION
  Report Type: 
  Country: None (occurrence: None)
  Receive Date: 20101011
  Receipt Date: 20101005
  Transmission Date: 20110411
  Serious: Yes (Other)
  Sender: FDA-Public Use
  Company Number: CHPA2010US15698

PATIENT
  Age: 66 Year
  Sex: Female
  Weight: 117.91 kg

DRUGS (1)
  1. VOLTAREN [Suspect]
     Indication: OSTEOARTHRITIS
     Dosage: UNK, BID
     Route: 061
     Dates: start: 20100901

REACTIONS (5)
  - BOWEL MOVEMENT IRREGULARITY [None]
  - CONDITION AGGRAVATED [None]
  - DRUG ADMINISTERED AT INAPPROPRIATE SITE [None]
  - RECTAL HAEMORRHAGE [None]
  - WRONG TECHNIQUE IN DRUG USAGE PROCESS [None]
